FAERS Safety Report 20235525 (Version 1)
Quarter: 2021Q4

REPORT INFORMATION
  Report Type: Other
  Country: SY (occurrence: None)
  Receive Date: 20211228
  Receipt Date: 20211228
  Transmission Date: 20220304
  Serious: Yes (Other)
  Sender: FDA-Public Use
  Company Number: SY-Encube-000134

PATIENT
  Age: 17 Year
  Sex: Female

DRUGS (1)
  1. TRIAMCINOLONE ACETONIDE [Suspect]
     Active Substance: TRIAMCINOLONE ACETONIDE
     Indication: Retinopathy solar
     Dosage: INJECTED 0.1 ML TRIAMCINOLONE
     Route: 031

REACTIONS (1)
  - Intraocular pressure increased [Recovered/Resolved]
